FAERS Safety Report 17437687 (Version 2)
Quarter: 2020Q2

REPORT INFORMATION
  Report Type: Spontaneous
  Country: EC (occurrence: EC)
  Receive Date: 20200219
  Receipt Date: 20200408
  Transmission Date: 20200713
  Serious: Yes (Hospitalization, Other)
  Sender: FDA-Public Use
  Company Number: EC-AMGEN-ECUSP2020026233

PATIENT
  Age: 77 Year
  Sex: Male
  Weight: 62 kg

DRUGS (1)
  1. NEULASTIM [Suspect]
     Active Substance: PEGFILGRASTIM
     Indication: CHRONIC LYMPHOCYTIC LEUKAEMIA
     Dosage: 6 MILLIGRAM, CYCLICAL
     Route: 058
     Dates: start: 20191001, end: 20200121

REACTIONS (4)
  - Respiratory tract infection [Not Recovered/Not Resolved]
  - Malignant neoplasm progression [Unknown]
  - Pneumonia [Recovered/Resolved]
  - Off label use [Unknown]

NARRATIVE: CASE EVENT DATE: 201910
